FAERS Safety Report 14845875 (Version 1)
Quarter: 2018Q2

REPORT INFORMATION
  Report Type: Report from Study
  Country: US (occurrence: US)
  Receive Date: 20180504
  Receipt Date: 20180504
  Transmission Date: 20180711
  Serious: Yes (Other)
  Sender: FDA-Public Use
  Company Number: US-ROCHE-2079798

PATIENT

DRUGS (2)
  1. DORNASE ALFA. [Suspect]
     Active Substance: DORNASE ALFA
     Indication: PLEURAL INFECTION
     Dosage: MIXED IN 50 ML OF 0.9% SODIUM CHLORIDE SOLUTION
     Route: 042
  2. ALTEPLASE. [Suspect]
     Active Substance: ALTEPLASE
     Indication: PLEURAL INFECTION
     Dosage: MIXED IN 50 ML OF 0.9% SODIUM CHLORIDE SOLUTION
     Route: 042

REACTIONS (1)
  - Haemothorax [Unknown]
